FAERS Safety Report 12949652 (Version 1)
Quarter: 2016Q4

REPORT INFORMATION
  Report Type: Spontaneous
  Country: SI (occurrence: SI)
  Receive Date: 20161116
  Receipt Date: 20161116
  Transmission Date: 20170207
  Serious: Yes (Other)
  Sender: FDA-Public Use
  Company Number: SI-ABBVIE-16P-261-1783900-00

PATIENT
  Age: 60 Year
  Sex: Female

DRUGS (3)
  1. SORVASTA [Concomitant]
     Active Substance: ROSUVASTATIN CALCIUM
     Indication: DYSLIPIDAEMIA
  2. KATALIP [Suspect]
     Active Substance: FENOFIBRATE
     Indication: DYSLIPIDAEMIA
     Dosage: 250MG TRDE KAPSULE
     Route: 048
     Dates: start: 20161021, end: 20161108
  3. PRENESSA [Concomitant]
     Active Substance: PERINDOPRIL
     Indication: HYPERTENSION

REACTIONS (1)
  - Angioedema [Unknown]

NARRATIVE: CASE EVENT DATE: 20161108
